FAERS Safety Report 9319440 (Version 13)
Quarter: 2017Q1

REPORT INFORMATION
  Report Type: Spontaneous
  Country: US (occurrence: US)
  Receive Date: 20130530
  Receipt Date: 20170125
  Transmission Date: 20170429
  Serious: Yes (Hospitalization, Other)
  Sender: FDA-Public Use
  Company Number: US-GLAXOSMITHKLINE-A0982901A

PATIENT
  Age: 6 Year
  Sex: Female

DRUGS (13)
  1. FLOLAN [Suspect]
     Active Substance: EPOPROSTENOL SODIUM
     Indication: PULMONARY ARTERIAL HYPERTENSION
     Dosage: 24 NG/KG/MIN
     Route: 042
     Dates: start: 20120321
  2. FLOLAN [Suspect]
     Active Substance: EPOPROSTENOL SODIUM
     Dosage: 72.5 NG/KG/MIN
  3. FLOLAN [Suspect]
     Active Substance: EPOPROSTENOL SODIUM
     Dosage: 67 DF, CO
     Route: 042
  4. FLOLAN [Suspect]
     Active Substance: EPOPROSTENOL SODIUM
     Dosage: 67 NG/KG/MIN, CO
  5. FLOLAN [Suspect]
     Active Substance: EPOPROSTENOL SODIUM
     Dosage: 63 NG/KG/MIN
     Dates: start: 20120531
  6. REVATIO [Concomitant]
     Active Substance: SILDENAFIL CITRATE
  7. LETAIRIS [Concomitant]
     Active Substance: AMBRISENTAN
  8. FLOLAN [Suspect]
     Active Substance: EPOPROSTENOL SODIUM
     Dosage: 62 DF, UNK
  9. FLOLAN [Suspect]
     Active Substance: EPOPROSTENOL SODIUM
     Indication: PULMONARY ARTERIAL HYPERTENSION
     Dosage: UNK
  10. FLOLAN [Suspect]
     Active Substance: EPOPROSTENOL SODIUM
     Dosage: UNK
  11. FLOLAN [Suspect]
     Active Substance: EPOPROSTENOL SODIUM
     Dosage: 63 NG/KG/MIN
     Dates: start: 20120321
  12. FLOLAN [Suspect]
     Active Substance: EPOPROSTENOL SODIUM
     Dosage: 63 NG/KG/MIN
     Dates: start: 20120321
  13. COUMADIN [Concomitant]
     Active Substance: WARFARIN SODIUM

REACTIONS (14)
  - Purulent discharge [Recovering/Resolving]
  - Device related infection [Unknown]
  - Hospitalisation [Unknown]
  - Complication associated with device [Unknown]
  - Device leakage [Unknown]
  - Catheter site inflammation [Unknown]
  - Pruritus [Not Recovered/Not Resolved]
  - Catheter site erythema [Recovering/Resolving]
  - Flushing [Not Recovered/Not Resolved]
  - Catheter site haemorrhage [Unknown]
  - Scab [Unknown]
  - Investigation [Unknown]
  - Wound [Unknown]
  - Haematochezia [Unknown]

NARRATIVE: CASE EVENT DATE: 20120616
